FAERS Safety Report 21395765 (Version 4)
Quarter: 2022Q4

REPORT INFORMATION
  Report Type: Report from Study
  Country: CA (occurrence: CA)
  Receive Date: 20220930
  Receipt Date: 20221130
  Transmission Date: 20230112
  Serious: Yes (Hospitalization, Other)
  Sender: FDA-Public Use
  Company Number: CA-JNJFOC-20220430684

PATIENT
  Age: 17 Year
  Sex: Female
  Weight: 58.7 kg

DRUGS (1)
  1. REMICADE [Suspect]
     Active Substance: INFLIXIMAB
     Indication: Crohn^s disease
     Dosage: ADDITIONAL EXPIRY DATE: 31-JAN-2025. DEC-2024?MBM81013 (X4)
     Route: 042
     Dates: start: 20060818

REACTIONS (5)
  - Bacterial vaginosis [Recovering/Resolving]
  - Threatened labour [Recovered/Resolved]
  - Exposure during pregnancy [Recovered/Resolved]
  - Vulvovaginal candidiasis [Not Recovered/Not Resolved]
  - Off label use [Unknown]

NARRATIVE: CASE EVENT DATE: 20060818
